FAERS Safety Report 19582170 (Version 1)
Quarter: 2021Q3

REPORT INFORMATION
  Report Type: Spontaneous
  Country: US (occurrence: US)
  Receive Date: 20210719
  Receipt Date: 20210719
  Transmission Date: 20211014
  Serious: No
  Sender: FDA-Public Use
  Company Number: US-GALDERMA-US2021012703

PATIENT

DRUGS (5)
  1. PROACTIV MD ADAPALENE ACNE TREATMENT [Suspect]
     Active Substance: ADAPALENE
     Indication: SKIN DISCOLOURATION
     Dosage: 1 DOSAGE FORM, TWICE
     Route: 061
     Dates: start: 20210504, end: 20210511
  2. PROACTIV MD ULTRA HYDRATING MOISTURIZER [Concomitant]
     Indication: SKIN DISCOLOURATION
     Dosage: 1 DOSAGE FORM, BID
     Route: 061
     Dates: start: 20210504, end: 20210511
  3. PROACTIV MD ULTRA GENTLE CLEANSER [Concomitant]
     Indication: SKIN DISCOLOURATION
     Dosage: 1 DOSAGE FORM, BID
     Route: 061
     Dates: start: 20210504, end: 20210511
  4. PROACTIV MD DAILY OIL CONTROL SPF 30 [Suspect]
     Active Substance: AVOBENZONE\OCTISALATE\OCTOCRYLENE
     Indication: SKIN DISCOLOURATION
     Dosage: 1 DOSAGE FORM, BID, CUTANEOUS SOLUTION
     Route: 061
     Dates: start: 20210504, end: 20210511
  5. PROACTIV POST ACNE SCAR GEL [Concomitant]
     Indication: SKIN DISCOLOURATION
     Dosage: 1 DOSAGE FORM, BID
     Route: 061
     Dates: start: 20210504, end: 20210511

REACTIONS (5)
  - Skin hyperpigmentation [Not Recovered/Not Resolved]
  - Skin irritation [Not Recovered/Not Resolved]
  - Product use in unapproved indication [Recovered/Resolved]
  - Rash [Not Recovered/Not Resolved]
  - Skin burning sensation [Not Recovered/Not Resolved]

NARRATIVE: CASE EVENT DATE: 20210504
